FAERS Safety Report 17074074 (Version 6)
Quarter: 2020Q1

REPORT INFORMATION
  Report Type: Report from Study
  Country: CO (occurrence: CO)
  Receive Date: 20191126
  Receipt Date: 20200316
  Transmission Date: 20200409
  Serious: Yes (Hospitalization, Other)
  Sender: FDA-Public Use
  Company Number: CO-BRISTOL-MYERS SQUIBB COMPANY-BMS-2019-112094

PATIENT
  Age: 23 Year
  Sex: Male

DRUGS (1)
  1. NIVOLUMAB [Suspect]
     Active Substance: NIVOLUMAB
     Indication: MALIGNANT MELANOMA
     Dosage: 230 MILLIGRAM, Q2WK
     Route: 042
     Dates: start: 20191112

REACTIONS (16)
  - Fatigue [Recovering/Resolving]
  - Influenza [Unknown]
  - Rash [Recovering/Resolving]
  - Asthenia [Recovering/Resolving]
  - Diarrhoea [Recovering/Resolving]
  - Wound dehiscence [Recovering/Resolving]
  - Anxiety [Recovering/Resolving]
  - Increased appetite [Unknown]
  - Blood thyroid stimulating hormone increased [Recovering/Resolving]
  - Abdominal pain upper [Recovering/Resolving]
  - Cough [Recovering/Resolving]
  - Cellulitis [Recovering/Resolving]
  - Irritability [Recovering/Resolving]
  - Irregular sleep wake rhythm disorder [Unknown]
  - Abdominal pain [Recovering/Resolving]
  - Malaise [Recovering/Resolving]

NARRATIVE: CASE EVENT DATE: 20191118
